FAERS Safety Report 6028529-3 (Version None)
Quarter: 2008Q4

REPORT INFORMATION
  Report Type: 
  Country: None (occurrence: None)
  Receive Date: 20081222
  Receipt Date: 20081027
  Transmission Date: 20090506
  Serious: No
  Sender: FDA-Public Use
  Company Number: US-WYE-H06590008

PATIENT
  Age: 67 Year
  Sex: Female
  Weight: 54.48 kg

DRUGS (6)
  1. PRISTIQ [Suspect]
     Indication: DEPRESSION
     Dosage: 1/2 PRISTIQ TABLET, ORAL ; 50 MG 1X PER 1 DAY, ORAL
     Route: 048
     Dates: start: 20080909, end: 20081102
  2. PRISTIQ [Suspect]
     Indication: DEPRESSION
     Dosage: 1/2 PRISTIQ TABLET, ORAL ; 50 MG 1X PER 1 DAY, ORAL
     Route: 048
     Dates: start: 20081103, end: 20081104
  3. ATENOLOL [Concomitant]
  4. XANAX [Concomitant]
  5. WELLBUTRIN [Concomitant]
  6. LEXAPRO [Concomitant]

REACTIONS (8)
  - ANOREXIA [None]
  - DISTURBANCE IN ATTENTION [None]
  - DIZZINESS [None]
  - DRUG INEFFECTIVE [None]
  - DRUG WITHDRAWAL SYNDROME [None]
  - HEADACHE [None]
  - NAUSEA [None]
  - PAIN [None]
